FAERS Safety Report 7125373-0 (Version None)
Quarter: 2010Q4

REPORT INFORMATION
  Report Type: 
  Country: None (occurrence: None)
  Receive Date: 20101129
  Receipt Date: 20101122
  Transmission Date: 20110411
  Serious: Yes (Hospitalization)
  Sender: FDA-Public Use
  Company Number: US-ROCHE-697876

PATIENT
  Sex: Female
  Weight: 57.4 kg

DRUGS (35)
  1. TOCILIZUMAB [Suspect]
     Indication: RHEUMATOID ARTHRITIS
     Dosage: DOSE: 11.5 ML, DOSAGE FORM: 400MG VIAL
     Route: 042
     Dates: start: 20091210
  2. TOCILIZUMAB [Suspect]
     Route: 042
     Dates: start: 20100107
  3. TOCILIZUMAB [Suspect]
     Route: 042
     Dates: start: 20100204
  4. TOCILIZUMAB [Suspect]
     Route: 042
     Dates: start: 20100304
  5. TOCILIZUMAB [Suspect]
     Dosage: DOSE MAINTAINED.
     Route: 042
     Dates: start: 20100401
  6. PERCOCET [Concomitant]
     Dosage: DOSE: 5-325 MG, TDD: 3 TABLETS
     Route: 048
     Dates: start: 20040701
  7. FOLIC ACID [Concomitant]
     Route: 048
     Dates: start: 20010101
  8. MORPHINE SULFATE [Concomitant]
     Dosage: DRUG REPORTED AS MORPHINE SULFATE CR
     Route: 048
     Dates: start: 20070701
  9. ISOSORBIDE DINITRATE [Concomitant]
     Route: 048
     Dates: start: 19990101
  10. CREON [Concomitant]
     Dosage: CREON CAPSULE 20, DOSE: 3 TABLETS
     Route: 048
     Dates: start: 20080901
  11. TEGRETOL-XR [Concomitant]
     Indication: RADICULOPATHY
     Route: 048
     Dates: start: 20030311
  12. SIMVASTATIN [Concomitant]
     Route: 048
     Dates: start: 20040101
  13. METOPROLOL TARTRATE [Concomitant]
     Indication: ANGINA PECTORIS
     Route: 048
     Dates: start: 19990101
  14. PREVACID [Concomitant]
     Route: 048
     Dates: start: 20080101
  15. ASPIRIN [Concomitant]
     Dosage: DRUG NAME REPORTED AS ASPIRIN 81 MG
     Route: 048
     Dates: start: 19990101, end: 20100419
  16. ASPIRIN [Concomitant]
     Route: 048
     Dates: start: 20100420
  17. PLAQUENIL [Concomitant]
     Route: 048
     Dates: start: 19960101, end: 19990101
  18. SULFASALAZINE [Concomitant]
     Route: 048
     Dates: start: 19960101, end: 19990101
  19. ARAVA [Concomitant]
     Route: 048
     Dates: start: 19960101, end: 19990101
  20. ENBREL [Concomitant]
     Route: 058
     Dates: start: 20000101, end: 20010101
  21. REMICADE [Concomitant]
     Route: 042
     Dates: start: 20010101, end: 20021210
  22. REMICADE [Concomitant]
     Route: 042
     Dates: start: 20021001, end: 20030306
  23. REMICADE [Concomitant]
     Route: 042
     Dates: start: 20030301, end: 20040422
  24. REMICADE [Concomitant]
     Route: 042
     Dates: start: 20040423, end: 20080228
  25. ORENCIA [Concomitant]
     Route: 042
     Dates: start: 20080324, end: 20081016
  26. ORENCIA [Concomitant]
     Route: 042
     Dates: start: 20081030, end: 20091105
  27. METHOTREXATE [Concomitant]
     Route: 048
     Dates: start: 20030306, end: 20040422
  28. METHOTREXATE [Concomitant]
     Route: 048
     Dates: start: 20040423, end: 20040708
  29. METHOTREXATE [Concomitant]
     Route: 048
     Dates: start: 20040709, end: 20060223
  30. METHOTREXATE [Concomitant]
     Route: 048
     Dates: start: 20060224, end: 20090716
  31. METHOTREXATE [Concomitant]
     Route: 048
     Dates: start: 20090717, end: 20090722
  32. METHOTREXATE [Concomitant]
     Route: 048
     Dates: start: 20090723
  33. MULTI-VITAMIN [Concomitant]
     Route: 048
     Dates: start: 19990101
  34. LACTOZYME [Concomitant]
     Dosage: DAILY WITH MEALS
     Dates: start: 20080101
  35. RECLAST [Concomitant]
     Indication: OSTEOPOROSIS
     Route: 042
     Dates: start: 20090101

REACTIONS (1)
  - COLITIS ISCHAEMIC [None]
